FAERS Safety Report 18713422 (Version 2)
Quarter: 2021Q1

REPORT INFORMATION
  Report Type: Spontaneous
  Country: US (occurrence: US)
  Receive Date: 20210107
  Receipt Date: 20210303
  Transmission Date: 20210419
  Serious: Yes (Hospitalization, Other)
  Sender: FDA-Public Use
  Company Number: US-ELI_LILLY_AND_COMPANY-US202012014025

PATIENT
  Age: 65 Year
  Sex: Male
  Weight: 108.9 kg

DRUGS (2)
  1. BYSTOLIC [Concomitant]
     Active Substance: NEBIVOLOL HYDROCHLORIDE
     Dosage: UNK, UNKNOWN
     Route: 065
  2. BAMLANIVIMAB. [Suspect]
     Active Substance: BAMLANIVIMAB
     Indication: COVID-19
     Dosage: 700 MG, SINGLE
     Route: 041
     Dates: start: 20201213, end: 20201213

REACTIONS (3)
  - Colloid brain cyst [Unknown]
  - Pneumonia [Unknown]
  - Bradycardia [Unknown]

NARRATIVE: CASE EVENT DATE: 20201220
